FAERS Safety Report 7408018-1 (Version None)
Quarter: 2011Q2

REPORT INFORMATION
  Report Type: 
  Country: None (occurrence: None)
  Receive Date: 20110412
  Receipt Date: 20110409
  Transmission Date: 20111010
  Serious: No
  Sender: FDA-Public Use
  Company Number: US-PFIZER INC-2011078467

PATIENT
  Sex: Female
  Weight: 108.8 kg

DRUGS (4)
  1. CHANTIX [Suspect]
     Indication: SMOKING CESSATION THERAPY
     Dosage: 0.5 MG, 1X/DAY
     Route: 048
     Dates: start: 20110329
  2. CHANTIX [Suspect]
     Dosage: 1 MG, 2X/DAY
     Route: 048
  3. PROMETHAZINE [Concomitant]
     Dosage: UNK
  4. TETRACYCLINE [Concomitant]
     Dosage: UNK

REACTIONS (1)
  - NAIL DISCOLOURATION [None]
